FAERS Safety Report 9528365 (Version 1)
Quarter: 2013Q3

REPORT INFORMATION
  Report Type: Spontaneous
  Country: US (occurrence: US)
  Receive Date: 20130917
  Receipt Date: 20130917
  Transmission Date: 20140515
  Serious: Yes (Other)
  Sender: FDA-Public Use
  Company Number: US-ASTRAZENECA-2013SE68027

PATIENT
  Age: 78 Year
  Sex: Female
  Weight: 90.7 kg

DRUGS (9)
  1. SYMBICORT [Suspect]
     Indication: EMPHYSEMA
     Dosage: 320MCG BID
     Route: 055
     Dates: start: 2011
  2. METOPROLOL [Suspect]
     Indication: HYPERTENSION
     Route: 048
  3. ARTHROTEC [Concomitant]
     Indication: ARTHRITIS
     Route: 048
  4. LOSARTAN [Concomitant]
     Indication: HYPERTENSION
     Route: 048
  5. PLAVIX [Concomitant]
     Indication: STENT PLACEMENT
     Route: 048
  6. ASPIRIN [Concomitant]
     Indication: STENT PLACEMENT
     Route: 048
  7. XANAX [Concomitant]
     Dosage: .025 1/2TB DAILY
     Route: 048
  8. TYLENOL [Concomitant]
     Indication: PAIN
     Dosage: PRN
     Route: 048
  9. ALBUTEROL [Concomitant]
     Route: 055

REACTIONS (11)
  - Thyroid neoplasm [Recovered/Resolved]
  - Bladder neoplasm [Recovered/Resolved]
  - Haemorrhage [Recovered/Resolved]
  - Paraesthesia [Not Recovered/Not Resolved]
  - Hypoaesthesia [Not Recovered/Not Resolved]
  - Nasal congestion [Not Recovered/Not Resolved]
  - Sinus disorder [Not Recovered/Not Resolved]
  - Formication [Not Recovered/Not Resolved]
  - Cough [Unknown]
  - Throat irritation [Not Recovered/Not Resolved]
  - Nausea [Not Recovered/Not Resolved]
